FAERS Safety Report 12224403 (Version 1)
Quarter: 2016Q1

REPORT INFORMATION
  Report Type: Spontaneous
  Country: US (occurrence: US)
  Receive Date: 20160331
  Receipt Date: 20160331
  Transmission Date: 20160526
  Serious: No
  Sender: FDA-Public Use
  Company Number: US-BRISTOL-MYERS SQUIBB COMPANY-BMS-2016-022855

PATIENT
  Sex: Female
  Weight: 73 kg

DRUGS (2)
  1. COUMADIN [Suspect]
     Active Substance: WARFARIN SODIUM
     Indication: HEART VALVE REPLACEMENT
     Dosage: 12 MG, UNK
     Route: 065
     Dates: start: 20160311
  2. COUMADIN [Suspect]
     Active Substance: WARFARIN SODIUM
     Dosage: 12.5 MG, UNK
     Route: 065

REACTIONS (1)
  - International normalised ratio increased [Unknown]
